FAERS Safety Report 6062905-8 (Version None)
Quarter: 2009Q1

REPORT INFORMATION
  Report Type: 
  Country: None (occurrence: None)
  Receive Date: 20090202
  Receipt Date: 20090202
  Transmission Date: 20090719
  Serious: Yes (Other)
  Sender: FDA-Public Use
  Company Number: None

PATIENT
  Age: 46 Year
  Sex: Female
  Weight: 47 kg

DRUGS (2)
  1. CALSAN (NCH) (CALCIUM CARBONATE) TABLET [Suspect]
     Indication: MINERAL SUPPLEMENTATION
     Dosage: 3 TABLETS PER DAY, ORAL
     Route: 048
     Dates: start: 20050101
  2. SYNTHROID [Concomitant]

REACTIONS (7)
  - ABDOMINAL DISCOMFORT [None]
  - DYSGEUSIA [None]
  - DYSPEPSIA [None]
  - LACTOSE INTOLERANCE [None]
  - NAUSEA [None]
  - PANCREATITIS [None]
  - WEIGHT DECREASED [None]
